FAERS Safety Report 4863336-6 (Version None)
Quarter: 2005Q4

REPORT INFORMATION
  Report Type: 
  Country: None (occurrence: None)
  Receive Date: 20051219
  Receipt Date: 20051209
  Transmission Date: 20060501
  Serious: Yes (Other)
  Sender: FDA-Public Use
  Company Number: 2005-12-0479

PATIENT
  Age: 77 Year
  Sex: Female

DRUGS (1)
  1. AERIUS (DESLORATADINE) TABLETS [Suspect]
     Dosage: ORAL
     Route: 048

REACTIONS (1)
  - CONFUSIONAL STATE [None]
